FAERS Safety Report 13227696 (Version 8)
Quarter: 2017Q3

REPORT INFORMATION
  Report Type: Report from Study
  Country: FR (occurrence: FR)
  Receive Date: 20170213
  Receipt Date: 20170823
  Transmission Date: 20171127
  Serious: Yes (Hospitalization)
  Sender: FDA-Public Use
  Company Number: FR-EISAI MEDICAL RESEARCH-EC-2017-024776

PATIENT
  Age: 64 Year
  Sex: Female
  Weight: 58 kg

DRUGS (10)
  1. DEPAKINE [Concomitant]
     Active Substance: VALPROATE SODIUM
  2. LAMICTAL [Concomitant]
     Active Substance: LAMOTRIGINE
  3. ESCITALOPRAM [Concomitant]
     Active Substance: ESCITALOPRAM OXALATE
  4. FYCOMPA [Suspect]
     Active Substance: PERAMPANEL
     Route: 048
     Dates: start: 20170325, end: 20170405
  5. FYCOMPA [Suspect]
     Active Substance: PERAMPANEL
     Route: 048
     Dates: start: 20170406, end: 20170410
  6. URBANYL [Concomitant]
     Active Substance: CLOBAZAM
  7. FYCOMPA [Suspect]
     Active Substance: PERAMPANEL
     Route: 048
     Dates: start: 20170225, end: 20170324
  8. FYCOMPA [Suspect]
     Active Substance: PERAMPANEL
     Indication: EPILEPSY
     Route: 048
     Dates: start: 20170125, end: 20170224
  9. FYCOMPA [Suspect]
     Active Substance: PERAMPANEL
     Route: 048
     Dates: start: 20170411, end: 20170420
  10. ESLICARBAZEPINE [Concomitant]
     Active Substance: ESLICARBAZEPINE

REACTIONS (3)
  - Balance disorder [Recovered/Resolved]
  - Traumatic intracranial haemorrhage [Recovered/Resolved]
  - Skull fractured base [Recovered/Resolved with Sequelae]

NARRATIVE: CASE EVENT DATE: 20170129
